FAERS Safety Report 4509791-2 (Version None)
Quarter: 2004Q4

REPORT INFORMATION
  Report Type: 
  Country: None (occurrence: None)
  Receive Date: 20041124
  Receipt Date: 20040607
  Transmission Date: 20050328
  Serious: Yes (Hospitalization)
  Sender: FDA-Public Use
  Company Number: US-BRISTOL-MYERS SQUIBB COMPANY-12607099

PATIENT
  Age: 77 Year
  Sex: Female
  Weight: 46 kg

DRUGS (7)
  1. AVALIDE [Suspect]
     Indication: HYPERTENSION
     Dosage: BEGAN 1 TABLET DAILY A FEW MONTHS AGO
     Route: 048
     Dates: start: 20040101, end: 20040601
  2. CATAPRES-TTS-1 [Concomitant]
     Dosage: ON FOR A FEW MONTHS
     Route: 062
  3. ATENOLOL TABS 100 MG [Concomitant]
     Route: 048
  4. EVISTA [Concomitant]
     Dosage: ON FOR YEARS
  5. AMBIEN [Concomitant]
     Dosage: 1 TABLET AT NIGHT AS NEEDED FOR YEARS (NOT ON A REGULAR BASIS)
  6. DIAZEPAM [Concomitant]
     Dosage: AS NEEDED FOR A FEW YEARS
  7. MECLIZINE [Concomitant]
     Dosage: AS NEEDED FOR YEARS

REACTIONS (5)
  - BLOOD SODIUM DECREASED [None]
  - CHEST PAIN [None]
  - HAEMATOCRIT DECREASED [None]
  - HAEMOGLOBIN DECREASED [None]
  - RED BLOOD CELL COUNT DECREASED [None]
